FAERS Safety Report 5658420-3 (Version None)
Quarter: 2008Q1

REPORT INFORMATION
  Report Type: 
  Country: None (occurrence: None)
  Receive Date: 20080310
  Receipt Date: 20070403
  Transmission Date: 20080703
  Serious: No
  Sender: FDA-Public Use
  Company Number: US-BAYER-200710474BCC

PATIENT
  Age: 56 Year
  Sex: Male
  Weight: 98 kg

DRUGS (4)
  1. ALEVE [Suspect]
     Dosage: UNIT DOSE: 220 MG
     Route: 048
     Dates: start: 20070208
  2. SUDAFED 12 HOUR [Concomitant]
  3. GLUCOSAMINE CHONDROITIN [Concomitant]
  4. FISH OIL OMEGA 3 [Concomitant]

REACTIONS (3)
  - COUGH [None]
  - EYE SWELLING [None]
  - FOOD ALLERGY [None]
